FAERS Safety Report 4693305-0 (Version None)
Quarter: 2005Q2

REPORT INFORMATION
  Report Type: 
  Country: None (occurrence: None)
  Receive Date: 20050617
  Receipt Date: 20050616
  Transmission Date: 20051028
  Serious: Yes (Other)
  Sender: FDA-Public Use
  Company Number: 001#3#2005-00995000

PATIENT
  Age: 11 Year
  Sex: Male

DRUGS (1)
  1. CEFUHEXAL [Suspect]
     Indication: RESPIRATORY DISORDER
     Dosage: 1G PER DAY
     Route: 048
     Dates: start: 20050509, end: 20050511

REACTIONS (1)
  - HALLUCINATION, AUDITORY [None]
